FAERS Safety Report 6952225-9 (Version None)
Quarter: 2010Q3

REPORT INFORMATION
  Report Type: 
  Country: None (occurrence: None)
  Receive Date: 20100829
  Receipt Date: 20100428
  Transmission Date: 20110219
  Serious: No
  Sender: FDA-Public Use
  Company Number: US-ABBOTT-10P-163-0637118-00

PATIENT
  Sex: Female
  Weight: 86.26 kg

DRUGS (6)
  1. NIASPAN [Suspect]
     Indication: HYPERLIPIDAEMIA
     Dates: start: 20100330, end: 20100401
  2. OMEPRAZOLE [Concomitant]
     Indication: OESOPHAGITIS
  3. OMEPRAZOLE [Concomitant]
     Indication: GASTRITIS
  4. LEVOXYL [Concomitant]
     Indication: HYPOTHYROIDISM
  5. PROPRANOLOL [Concomitant]
     Indication: MIGRAINE
  6. ELAVIL [Concomitant]
     Indication: MIGRAINE

REACTIONS (7)
  - ASTHENIA [None]
  - FLUSHING [None]
  - HEADACHE [None]
  - MALAISE [None]
  - PARAESTHESIA ORAL [None]
  - SENSORY DISTURBANCE [None]
  - TREMOR [None]
